FAERS Safety Report 5201063-6 (Version None)
Quarter: 2007Q1

REPORT INFORMATION
  Report Type: 
  Country: None (occurrence: None)
  Receive Date: 20070108
  Receipt Date: 20061228
  Transmission Date: 20070707
  Serious: Yes (Death, Other)
  Sender: FDA-Public Use
  Company Number: PHHO2006JP22106

PATIENT
  Age: 65 Year
  Sex: Female

DRUGS (1)
  1. ZOMETA [Suspect]
     Indication: HYPERCALCAEMIA OF MALIGNANCY
     Dosage: 4 MG, UNK
     Route: 042
     Dates: start: 20060728

REACTIONS (3)
  - HYPOALBUMINAEMIA [None]
  - MALIGNANT NEOPLASM PROGRESSION [None]
  - OPTIC NEURITIS RETROBULBAR [None]
